FAERS Safety Report 6495289-1 (Version None)
Quarter: 2009Q4

REPORT INFORMATION
  Report Type: 
  Country: None (occurrence: None)
  Receive Date: 20091214
  Receipt Date: 20090521
  Transmission Date: 20100525
  Serious: No
  Sender: FDA-Public Use
  Company Number: US-BRISTOL-MYERS SQUIBB COMPANY-14634216

PATIENT
  Age: 62 Year
  Sex: Female
  Weight: 158 kg

DRUGS (5)
  1. ABILIFY [Suspect]
     Indication: MANIA
     Dates: start: 20090501
  2. LEXAPRO [Concomitant]
     Indication: MANIA
  3. NABUMETONE [Concomitant]
  4. GLUCOPHAGE [Concomitant]
  5. SPIRONOLACTONE [Concomitant]

REACTIONS (4)
  - FLUSHING [None]
  - HEADACHE [None]
  - NAUSEA [None]
  - PYREXIA [None]
